FAERS Safety Report 4997190-9 (Version None)
Quarter: 2006Q2

REPORT INFORMATION
  Report Type: 
  Country: None (occurrence: None)
  Receive Date: 20060508
  Receipt Date: 20060508
  Transmission Date: 20061013
  Serious: Yes (Life-Threatening, Hospitalization, Disabling)
  Sender: FDA-Public Use
  Company Number: None

PATIENT
  Age: 33 Year
  Sex: Female
  Weight: 81.6475 kg

DRUGS (8)
  1. WELLBUTRIN XL [Suspect]
     Indication: ANXIETY
     Dosage: 300 MG DAILY INJ
     Dates: start: 20040325, end: 20040327
  2. WELLBUTRIN XL [Suspect]
     Indication: DEPRESSION
     Dosage: 300 MG DAILY INJ
     Dates: start: 20040325, end: 20040327
  3. INSULIN [Concomitant]
  4. LIPITOR [Concomitant]
  5. SYNTHROID [Concomitant]
  6. HYDROCHLOROTHIAZIDE [Concomitant]
  7. LOTENSIN [Concomitant]
  8. MULTIPLE VITAMIN [Concomitant]

REACTIONS (6)
  - AMNESIA [None]
  - BLOOD GLUCOSE DECREASED [None]
  - CONVULSION [None]
  - HEADACHE [None]
  - LOSS OF CONSCIOUSNESS [None]
  - MEMORY IMPAIRMENT [None]
